FAERS Safety Report 4549301-7 (Version None)
Quarter: 2005Q1

REPORT INFORMATION
  Report Type: 
  Country: None (occurrence: None)
  Receive Date: 20050106
  Receipt Date: 20041221
  Transmission Date: 20050727
  Serious: Yes (Other)
  Sender: FDA-Public Use
  Company Number: USA040156030

PATIENT
  Age: 73 Year
  Sex: Female
  Weight: 58 kg

DRUGS (14)
  1. FORTEO [Suspect]
     Indication: OSTEOPOROSIS
     Dosage: 20 UG/DAY
     Dates: start: 20031101
  2. CALCIUM AND VITAMIN D [Concomitant]
  3. ACIPHEX [Concomitant]
  4. AMOXIL [Concomitant]
  5. ACETYLSALICYLIC ACID SRT [Concomitant]
  6. CALAN SR (VERAPAMIL HYDROCHLORIDE) [Concomitant]
  7. CALCIUM CARBONATE [Concomitant]
  8. CLARITIN [Concomitant]
  9. FLAX SEED OIL [Concomitant]
  10. MULTIVITAMINS NOS (MULTIVITAMINS NOS) [Concomitant]
  11. NITROGLYCERIN [Concomitant]
  12. PRINIVIL [Concomitant]
  13. ACETAMINOPHEN [Concomitant]
  14. VITAMIN B6 [Concomitant]

REACTIONS (22)
  - ARTHRALGIA [None]
  - ASTHENIA [None]
  - BACK PAIN [None]
  - BLOOD CALCIUM INCREASED [None]
  - CHEST PAIN [None]
  - CONGENITAL ANOMALY [None]
  - DIZZINESS [None]
  - DYSGEUSIA [None]
  - ERYTHEMA [None]
  - FATIGUE [None]
  - HYPERTROPHIC CARDIOMYOPATHY [None]
  - INCREASED APPETITE [None]
  - INFLUENZA [None]
  - INJECTION SITE ERYTHEMA [None]
  - INJECTION SITE PAIN [None]
  - INJECTION SITE RASH [None]
  - MUSCLE SPASMS [None]
  - NAUSEA [None]
  - NERVE COMPRESSION [None]
  - PALPITATIONS [None]
  - PHARMACEUTICAL PRODUCT COMPLAINT [None]
  - WEIGHT INCREASED [None]
